FAERS Safety Report 17568333 (Version 3)
Quarter: 2020Q2

REPORT INFORMATION
  Report Type: Spontaneous
  Country: US (occurrence: US)
  Receive Date: 20200320
  Receipt Date: 20200416
  Transmission Date: 20200713
  Serious: No
  Sender: FDA-Public Use
  Company Number: US-ACTELION-A-NJ2020-203173

PATIENT
  Sex: Male

DRUGS (3)
  1. TRACLEER [Suspect]
     Active Substance: BOSENTAN
     Indication: PULMONARY HYPERTENSION
     Dosage: 13.2 MG (VIA GTT)
     Dates: start: 201910
  2. UPTRAVI [Concomitant]
     Active Substance: SELEXIPAG
     Indication: PULMONARY HYPERTENSION
  3. SILDENAFIL. [Concomitant]
     Active Substance: SILDENAFIL

REACTIONS (2)
  - Product use issue [Unknown]
  - No adverse event [Unknown]
